FAERS Safety Report 7269280-1 (Version None)
Quarter: 2011Q1

REPORT INFORMATION
  Report Type: 
  Country: None (occurrence: None)
  Receive Date: 20110124
  Receipt Date: 20110107
  Transmission Date: 20110831
  Serious: Yes (Hospitalization)
  Sender: FDA-Public Use
  Company Number: DSA_44784_2011

PATIENT
  Age: 44 Year
  Sex: Female

DRUGS (11)
  1. FLOLAN [Suspect]
     Indication: COR PULMONALE CHRONIC
     Dosage: SEE IMAGE
     Route: 042
     Dates: start: 20080912
  2. RYHMOL /00546302/  (NOT SPECIFIED) [Suspect]
     Indication: PRODUCT USED FOR UNKNOWN INDICATION
     Dosage: (450 MG ORAL)
     Route: 048
  3. FLOLAN [Suspect]
     Indication: COR PULMONALE CHRONIC
     Dosage: (DF INTRAVENOUS (NOT OTHERWISE SPECIFIED))
     Route: 042
     Dates: start: 20080912
  4. PROZAC [Suspect]
     Indication: PRODUCT USED FOR UNKNOWN INDICATION
     Dosage: (40 MG ORAL)
     Route: 048
  5. LISINOPRIL [Concomitant]
  6. CLONAZEPAM [Concomitant]
  7. NEXIUM /01479303/ [Concomitant]
  8. BUPROPION HCL [Suspect]
     Indication: PRODUCT USED FOR UNKNOWN INDICATION
     Dosage: (200 MG QD ORAL)
     Route: 048
  9. KLOR-CON [Concomitant]
  10. LASIX [Concomitant]
  11. PREDNISONE [Concomitant]

REACTIONS (5)
  - DIZZINESS [None]
  - HEART RATE INCREASED [None]
  - CONFUSIONAL STATE [None]
  - DRUG ADMINISTRATION ERROR [None]
  - TREATMENT NONCOMPLIANCE [None]
